FAERS Safety Report 9338132 (Version 1)
Quarter: 2013Q2

REPORT INFORMATION
  Report Type: Spontaneous
  Country: US (occurrence: US)
  Receive Date: 20130610
  Receipt Date: 20130610
  Transmission Date: 20140414
  Serious: No
  Sender: FDA-Public Use
  Company Number: US-B.I. PHARMACEUTICALS,INC./RIDGEFIELD-2013-BI-15812BP

PATIENT
  Age: 77 Year
  Sex: Male
  Weight: 73 kg

DRUGS (12)
  1. SPIRIVA [Suspect]
     Indication: LUNG CARCINOMA CELL TYPE UNSPECIFIED STAGE IV
     Dosage: 18 MCG
     Route: 055
     Dates: start: 201211
  2. LIPITOR [Concomitant]
     Indication: BLOOD CHOLESTEROL INCREASED
     Dosage: 80 MG
     Route: 048
  3. CARVEDILOL [Concomitant]
     Indication: VASCULAR GRAFT
     Dosage: 6.25 MG
     Route: 048
  4. HYDROCODONE [Concomitant]
     Dosage: STRENGTH: 5/500 MG; DAILY DOSE: 20/2000 MG
     Route: 048
  5. MULTIVITAMIN [Concomitant]
  6. FOLIC ACID [Concomitant]
     Dosage: 1 MG
     Route: 048
  7. LORAZEPAM [Concomitant]
     Indication: ANXIETY
     Dosage: 1.5 MG
     Route: 048
  8. PRILOSEC [Concomitant]
     Indication: GASTROOESOPHAGEAL REFLUX DISEASE
     Route: 048
  9. MELOXICAM [Concomitant]
     Indication: ARTHRITIS
     Dosage: 15 MG
     Route: 048
  10. LOVENOX [Concomitant]
     Indication: THROMBOSIS
     Dosage: 100 MG
     Route: 058
  11. TERAZOSIN [Concomitant]
     Indication: PROSTATOMEGALY
     Dosage: 5 MG
     Route: 048
  12. FUROSEMIDE [Concomitant]
     Indication: FLUID RETENTION
     Dosage: 20 MG
     Route: 048

REACTIONS (2)
  - Dyspnoea [Not Recovered/Not Resolved]
  - Anxiety [Not Recovered/Not Resolved]
